FAERS Safety Report 8810761 (Version 1)
Quarter: 2012Q4

REPORT INFORMATION
  Report Type: Spontaneous
  Country: US (occurrence: None)
  Receive Date: 20120924
  Receipt Date: 20120924
  Transmission Date: 20130627
  Serious: Yes (Congenital Anomaly)
  Sender: FDA-Public Use
  Company Number: None

PATIENT
  Age: 38 Year
  Sex: Female
  Weight: 72.58 kg

DRUGS (4)
  1. LAMICTAL [Suspect]
     Indication: GENERALIZED ANXIETY DISORDER
  2. LAMICTAL [Suspect]
  3. VENLAFAXINE [Suspect]
  4. TRAZODONE [Suspect]

REACTIONS (5)
  - Neonatal aspiration [None]
  - Apgar score low [None]
  - Small for dates baby [None]
  - Maternal drugs affecting foetus [None]
  - Nervous system disorder [None]
